FAERS Safety Report 8135477-1 (Version None)
Quarter: 2012Q1

REPORT INFORMATION
  Report Type: 
  Country: None (occurrence: None)
  Receive Date: 20120214
  Receipt Date: 20120206
  Transmission Date: 20120608
  Serious: Yes (Hospitalization)
  Sender: FDA-Public Use
  Company Number: US-BAYER-2011-028616

PATIENT
  Age: 35 Year
  Sex: Female
  Weight: 107 kg

DRUGS (10)
  1. YASMIN [Suspect]
     Indication: PREMENSTRUAL SYNDROME
     Dosage: UNK
     Dates: start: 20070401, end: 20090201
  2. ANTIBIOTICS [Concomitant]
     Dosage: UNK UNK, PRN
  3. NAPROXEN (ALEVE) [Concomitant]
     Indication: PAIN
     Dosage: UNK UNK, PRN
  4. NSAID'S [Concomitant]
     Dosage: UNK UNK, PRN
  5. NEXIUM [Concomitant]
     Indication: REFLUX GASTRITIS
     Dosage: 40 MG, DAILY
  6. FLEXERIL [Concomitant]
     Indication: MUSCLE SPASMS
     Dosage: 10 MG, DAILY
  7. OXYCODONE HCL [Concomitant]
     Indication: PAIN
     Dosage: UNK UNK, PRN
  8. YAZ [Suspect]
     Indication: PREMENSTRUAL SYNDROME
     Dosage: UNK
     Dates: start: 20070401, end: 20090201
  9. MOTRIN [Concomitant]
     Indication: PAIN
     Dosage: UNK UNK, PRN
  10. LEXAPRO [Concomitant]
     Indication: ANXIETY
     Dosage: 15 MG, UNK
     Dates: start: 20010101

REACTIONS (7)
  - ANXIETY [None]
  - PSYCHOLOGICAL TRAUMA [None]
  - ABDOMINAL PAIN UPPER [None]
  - EMOTIONAL DISTRESS [None]
  - FEAR [None]
  - GALLBLADDER DISORDER [None]
  - CHOLECYSTITIS [None]
